FAERS Safety Report 7482189-3 (Version None)
Quarter: 2011Q2

REPORT INFORMATION
  Report Type: 
  Country: None (occurrence: None)
  Receive Date: 20110516
  Receipt Date: 20110513
  Transmission Date: 20111010
  Serious: Yes (Other)
  Sender: FDA-Public Use
  Company Number: CN-PFIZER INC-2011102796

PATIENT
  Sex: Male

DRUGS (1)
  1. ZOLOFT [Suspect]
     Dosage: THREE TABLETS PER DAY
     Route: 048

REACTIONS (2)
  - POVERTY OF SPEECH [None]
  - COMMUNICATION DISORDER [None]
